FAERS Safety Report 16432475 (Version 5)
Quarter: 2020Q1

REPORT INFORMATION
  Report Type: Spontaneous
  Country: US (occurrence: US)
  Receive Date: 20190614
  Receipt Date: 20200323
  Transmission Date: 20200409
  Serious: Yes (Other)
  Sender: FDA-Public Use
  Company Number: US-INCYTE CORPORATION-2019IN005686

PATIENT

DRUGS (6)
  1. JAKAFI [Suspect]
     Active Substance: RUXOLITINIB
     Dosage: 10 MILLIGRAM BID MWF, 5 MG REST OF WEEK
     Route: 048
     Dates: start: 20190910
  2. JAKAFI [Suspect]
     Active Substance: RUXOLITINIB
     Dosage: 10 MILLIGRAM BID (MONDAY, WEDNESDAY AND FRIDAY), 5 MG REST OF THE WEEK
     Route: 048
     Dates: start: 20190525
  3. JAKAFI [Suspect]
     Active Substance: RUXOLITINIB
     Indication: POLYCYTHAEMIA VERA
     Dosage: 5 MILLIGRAM, QD
     Route: 048
  4. JAKAFI [Suspect]
     Active Substance: RUXOLITINIB
     Dosage: 5 MILLIGRAM, BID
     Route: 048
     Dates: start: 20190212
  5. JAKAFI [Suspect]
     Active Substance: RUXOLITINIB
     Dosage: 10 MILLIGRAM BID (MONDAY, WEDNESDAY AND FRIDAY), 5 MG REST OF THE WEEK
     Dates: start: 20190214
  6. JAKAFI [Suspect]
     Active Substance: RUXOLITINIB
     Dosage: 5 MILLIGRAM, BID
     Route: 048
     Dates: start: 20190214, end: 20190531

REACTIONS (21)
  - Flatulence [Unknown]
  - Neuropathy peripheral [Not Recovered/Not Resolved]
  - Ear pain [Unknown]
  - Gastritis [Not Recovered/Not Resolved]
  - Anaemia [Unknown]
  - Hypoaesthesia [Unknown]
  - Gastrooesophageal reflux disease [Not Recovered/Not Resolved]
  - Mouth ulceration [Unknown]
  - Asthenia [Unknown]
  - Headache [Unknown]
  - Fatigue [Unknown]
  - Dyspnoea [Unknown]
  - Pruritus [Unknown]
  - Mobility decreased [Unknown]
  - Oropharyngeal pain [Not Recovered/Not Resolved]
  - Gastrointestinal inflammation [Not Recovered/Not Resolved]
  - Oxygen saturation abnormal [Not Recovered/Not Resolved]
  - Renal impairment [Unknown]
  - Haemoglobin increased [Unknown]
  - Oesophagitis [Not Recovered/Not Resolved]
  - Nausea [Not Recovered/Not Resolved]
